FAERS Safety Report 8599553-1 (Version None)
Quarter: 2012Q3

REPORT INFORMATION
  Report Type: 
  Country: None (occurrence: None)
  Receive Date: 20120816
  Receipt Date: 20111219
  Transmission Date: 20120928
  Serious: No
  Sender: FDA-Public Use
  Company Number: US-MYLANLABS-2011S1019248

PATIENT
  Age: 57 Year
  Sex: Female
  Weight: 63.5 kg

DRUGS (13)
  1. PREDNISONE TAB [Suspect]
     Indication: BACK PAIN
     Route: 048
     Dates: start: 20110701
  2. MELOXICAM [Suspect]
     Indication: INFLAMMATION
     Route: 048
     Dates: start: 20110821, end: 20110821
  3. LORAZEPAM [Suspect]
     Indication: NECK PAIN
     Route: 048
     Dates: start: 20110601, end: 20110820
  4. HYDROCODONE BITARTRATE AND ACETAMINOPHEN [Suspect]
     Dates: start: 20110601, end: 20110820
  5. LORAZEPAM [Suspect]
     Indication: BACK PAIN
     Route: 048
     Dates: start: 20110601, end: 20110820
  6. VITAMIN D [Concomitant]
  7. OMEPRAZOLE [Concomitant]
  8. HYDROCODONE BITARTRATE AND ACETAMINOPHEN [Suspect]
     Dates: start: 20110601, end: 20110820
  9. MELOXICAM [Suspect]
     Indication: NECK PAIN
     Route: 048
     Dates: start: 20110821, end: 20110821
  10. HYDROCODONE BITARTRATE AND ACETAMINOPHEN [Suspect]
     Indication: NECK PAIN
     Dates: start: 20110601, end: 20110820
  11. HYDROCODONE BITARTRATE AND ACETAMINOPHEN [Suspect]
     Indication: BACK PAIN
     Dates: start: 20110601, end: 20110820
  12. MELOXICAM [Suspect]
     Indication: BACK PAIN
     Route: 048
     Dates: start: 20110821, end: 20110821
  13. PREDNISONE TAB [Suspect]
     Indication: NECK PAIN
     Route: 048
     Dates: start: 20110701

REACTIONS (5)
  - THROAT TIGHTNESS [None]
  - CHEILITIS [None]
  - INFLUENZA LIKE ILLNESS [None]
  - LIP SWELLING [None]
  - PHARYNGEAL OEDEMA [None]
